FAERS Safety Report 7781367-3 (Version None)
Quarter: 2011Q3

REPORT INFORMATION
  Report Type: 
  Country: None (occurrence: None)
  Receive Date: 20110923
  Receipt Date: 20110912
  Transmission Date: 20111222
  Serious: Yes (Death)
  Sender: FDA-Public Use
  Company Number: OMPQ-NO-1109S-0992

PATIENT
  Age: 71 Year
  Sex: Female

DRUGS (13)
  1. GLIBRNCLAMIDE (EUGLUCON)(GLIBENCLAMIIDE) [Concomitant]
  2. FURSULTIAMINE HYDROCHLORIDE (VITAFANT F)(FURSULTIAMINE HYDROCHLPRIDE) [Concomitant]
  3. ETIZOLAM (DEPAS) (ETIZOLAM) [Concomitant]
  4. VOGLIBOSE (BASEN) (VOGLIBOSE) [Concomitant]
  5. REBAMIPIDE (REBAMIPIDE) [Concomitant]
  6. OMNIPAQUE 70 [Suspect]
     Indication: ANAEMIA
     Dosage: 100 ML, SINGLE DOSE, INTRAVENOUS
     Route: 042
     Dates: start: 20110829, end: 20110829
  7. METFORMIN HYDROCHLORIDE (GLYCORAN)(METFORMIN HYDROCHLCTRIDE) [Concomitant]
  8. SPIRDNOLRCTONE (ALDACTONE A)(SPIRONOLACTONE) [Concomitant]
  9. FERROUS CITRATE (FERROMIA) (FERROUS CITRATE) [Concomitant]
  10. ASCORBIC ACID, CALCIUM PANTOTHENATE (CP)(ASCORBIC ACID) [Concomitant]
  11. TORASEMIDE (LUPRAC)(TORASEMIDE) [Concomitant]
  12. ISOSORBIDE DINITRATE (NITOROL) (ISOSORBIDE DINITRATE) [Concomitant]
  13. AMLODIPINE BESILATE (NORVASC OD)(AMLODIPINE BESILATE, AMLODIPINE BESIL [Concomitant]

REACTIONS (4)
  - MYDRIASIS [None]
  - CARDIAC ARREST [None]
  - SHOCK HAEMORRHAGIC [None]
  - RESPIRATORY ARREST [None]
